FAERS Safety Report 8887847 (Version 2)
Quarter: 2014Q2

REPORT INFORMATION
  Report Type: Spontaneous
  Country: US (occurrence: US)
  Receive Date: 20121106
  Receipt Date: 20140409
  Transmission Date: 20141212
  Serious: Yes (Hospitalization)
  Sender: FDA-Public Use
  Company Number: US-B.I. PHARMACEUTICALS,INC./RIDGEFIELD-2012-BP-27004BP

PATIENT
  Age: 45 Year
  Sex: Male
  Weight: 105.69 kg

DRUGS (7)
  1. PRADAXA [Suspect]
     Indication: PRODUCT USED FOR UNKNOWN INDICATION
     Dosage: 300 MG
     Route: 048
     Dates: start: 20110805, end: 20111007
  2. EPLERENONE [Concomitant]
     Dosage: 50 MG
     Route: 048
     Dates: start: 200905
  3. FAMOTIDINE [Concomitant]
     Dosage: 40 MG
     Route: 048
     Dates: start: 200905
  4. COREG [Concomitant]
     Dosage: 25 MG
     Route: 048
     Dates: start: 200905
  5. LISINOPRIL [Concomitant]
     Dosage: 2.5 MG
     Route: 048
     Dates: start: 200905
  6. LIPITOR [Concomitant]
     Dosage: 40 MG
     Route: 048
     Dates: start: 200905
  7. ASPIRIN [Concomitant]
     Dosage: 81 MG
     Route: 048

REACTIONS (4)
  - Myocardial infarction [Unknown]
  - Nausea [Unknown]
  - Epistaxis [Unknown]
  - Rectal haemorrhage [Unknown]
